FAERS Safety Report 5443489-1 (Version None)
Quarter: 2007Q3

REPORT INFORMATION
  Report Type: 
  Country: None (occurrence: None)
  Receive Date: 20070905
  Receipt Date: 20070824
  Transmission Date: 20080115
  Serious: Yes (Other)
  Sender: FDA-Public Use
  Company Number: CN-ROCHE-513746

PATIENT
  Age: 52 Year
  Sex: Female
  Weight: 63 kg

DRUGS (2)
  1. XELODA [Suspect]
     Indication: BREAST CANCER
     Route: 048
     Dates: start: 20070810
  2. DOCETAXEL [Concomitant]
     Indication: BREAST CANCER
     Dosage: FORM REPORTED AS GTT.
     Route: 042
     Dates: start: 20070810

REACTIONS (1)
  - HEPATIC ENZYME INCREASED [None]
